FAERS Safety Report 7396732-6 (Version None)
Quarter: 2011Q2

REPORT INFORMATION
  Report Type: 
  Country: None (occurrence: None)
  Receive Date: 20110406
  Receipt Date: 20110329
  Transmission Date: 20111010
  Serious: Yes (Death)
  Sender: FDA-Public Use
  Company Number: CN-ROCHE-768049

PATIENT
  Sex: Male

DRUGS (3)
  1. SANDIMMUNE [Suspect]
     Indication: RENAL TRANSPLANT
     Route: 048
     Dates: start: 20060811
  2. MYCOPHENOLATE MOFETIL [Suspect]
     Indication: RENAL TRANSPLANT
     Route: 048
     Dates: start: 20060811
  3. STEROID NOS [Concomitant]
     Indication: RENAL TRANSPLANT

REACTIONS (1)
  - RENAL FAILURE [None]
